FAERS Safety Report 6599002-9 (Version None)
Quarter: 2010Q1

REPORT INFORMATION
  Report Type: 
  Country: None (occurrence: None)
  Receive Date: 20100224
  Receipt Date: 20090611
  Transmission Date: 20100710
  Serious: No
  Sender: FDA-Public Use
  Company Number: US-BRISTOL-MYERS SQUIBB COMPANY-14662050

PATIENT
  Age: 66 Year
  Sex: Male

DRUGS (3)
  1. GLUCOPHAGE [Suspect]
  2. ACTOS [Suspect]
  3. AVANDIA [Suspect]

REACTIONS (5)
  - ABDOMINAL PAIN UPPER [None]
  - DYSPNOEA [None]
  - GASTROINTESTINAL PAIN [None]
  - READING DISORDER [None]
  - VISUAL IMPAIRMENT [None]
